FAERS Safety Report 10986412 (Version 1)
Quarter: 2015Q2

REPORT INFORMATION
  Report Type: Spontaneous
  Country: US (occurrence: US)
  Receive Date: 20150404
  Receipt Date: 20150404
  Transmission Date: 20150821
  Serious: No
  Sender: FDA-Public Use
  Company Number: US-B.I. PHARMACEUTICALS,INC./RIDGEFIELD-2015-BI-15647BP

PATIENT

DRUGS (3)
  1. CENTRUM VITAMINS [Concomitant]
     Indication: PRODUCT USED FOR UNKNOWN INDICATION
     Route: 065
  2. ROBAXN [Concomitant]
     Indication: PRODUCT USED FOR UNKNOWN INDICATION
     Route: 048
  3. MOBIC [Suspect]
     Active Substance: MELOXICAM
     Indication: PRODUCT USED FOR UNKNOWN INDICATION
     Route: 048
     Dates: start: 201412, end: 20150318

REACTIONS (7)
  - Insomnia [Unknown]
  - Depression [Unknown]
  - Hot flush [Unknown]
  - Conversion disorder [Unknown]
  - Hypertension [Unknown]
  - Mental disorder [Unknown]
  - White blood cell count increased [Unknown]
